FAERS Safety Report 4666142-0 (Version None)
Quarter: 2005Q2

REPORT INFORMATION
  Report Type: 
  Country: None (occurrence: None)
  Receive Date: 20050519
  Receipt Date: 20050506
  Transmission Date: 20051028
  Serious: Yes (Other)
  Sender: FDA-Public Use
  Company Number: DE-JNJFOC-20050405169

PATIENT
  Sex: Male
  Weight: 72 kg

DRUGS (3)
  1. RISPERDAL [Suspect]
     Route: 049
  2. RISPERDAL [Suspect]
     Indication: DELUSIONAL DISORDER, UNSPECIFIED TYPE
     Route: 049
  3. SEROQUEL [Concomitant]
     Indication: DELUSIONAL DISORDER, UNSPECIFIED TYPE
     Route: 049

REACTIONS (2)
  - INFECTION [None]
  - LEUKOPENIA [None]
